FAERS Safety Report 8784425 (Version 1)
Quarter: 2012Q4

REPORT INFORMATION
  Report Type: 
  Country: US (occurrence: US)
  Receive Date: 20120913
  Receipt Date: 20120913
  Transmission Date: 20130627
  Serious: No
  Sender: FDA-Public Use
  Company Number: US-PFIZER INC-2012220727

PATIENT
  Sex: Female

DRUGS (5)
  1. NEURONTIN [Suspect]
     Indication: NERVE INJURY
     Dosage: 600 mg, 3x/day
     Route: 048
     Dates: start: 201011, end: 201208
  2. NEURONTIN [Suspect]
     Dosage: 300 mg, 2x/day
     Route: 048
     Dates: start: 201208
  3. BACLOFEN [Concomitant]
     Indication: MUSCLE SPASMS
     Dosage: 10 mg, 1x/day
  4. VICODIN [Concomitant]
     Dosage: UNK
  5. LORAZEPAM [Concomitant]
     Indication: ANXIETY
     Dosage: UNK

REACTIONS (3)
  - Gastrooesophageal reflux disease [Not Recovered/Not Resolved]
  - Pain [Not Recovered/Not Resolved]
  - Neuropathy peripheral [Not Recovered/Not Resolved]
